FAERS Safety Report 19419217 (Version 1)
Quarter: 2021Q2

REPORT INFORMATION
  Report Type: Spontaneous
  Country: CN (occurrence: CN)
  Receive Date: 20210615
  Receipt Date: 20210615
  Transmission Date: 20210717
  Serious: Yes (Other)
  Sender: FDA-Public Use
  Company Number: CN-PFIZER INC-2021658736

PATIENT
  Age: 43 Year
  Sex: Female
  Weight: 58 kg

DRUGS (4)
  1. METHOTREXATE. [Suspect]
     Active Substance: METHOTREXATE
     Indication: CHORIOCARCINOMA
     Dosage: 150 MG, 1X/DAY
     Route: 040
     Dates: start: 20210421, end: 20210421
  2. METHOTREXATE. [Suspect]
     Active Substance: METHOTREXATE
     Dosage: 310 MG, 1X/DAY
     Route: 041
     Dates: start: 20210421, end: 20210421
  3. ETOPOSIDE. [Suspect]
     Active Substance: ETOPOSIDE
     Indication: CHORIOCARCINOMA
     Dosage: 150 MG, 1X/DAY
     Route: 041
     Dates: start: 20210421, end: 20210422
  4. DACTINOMYCIN [Suspect]
     Active Substance: DACTINOMYCIN
     Indication: CHORIOCARCINOMA
     Dosage: 0.500 MG, 1X/DAY
     Route: 041
     Dates: start: 20210421, end: 20210422

REACTIONS (2)
  - Nail pigmentation [Recovering/Resolving]
  - Pigmentation disorder [Recovering/Resolving]

NARRATIVE: CASE EVENT DATE: 20210422
